FAERS Safety Report 7649407-X (Version None)
Quarter: 2011Q3

REPORT INFORMATION
  Report Type: 
  Country: None (occurrence: None)
  Receive Date: 20110802
  Receipt Date: 20110726
  Transmission Date: 20111222
  Serious: Yes (Other)
  Sender: FDA-Public Use
  Company Number: US-JNJFOC-20110800101

PATIENT
  Sex: Female
  Weight: 87.09 kg

DRUGS (7)
  1. AVELOX [Concomitant]
     Indication: SINUSITIS
     Route: 048
     Dates: start: 20110722
  2. NUCYNTA [Suspect]
     Indication: HEADACHE
     Route: 048
     Dates: start: 20110723, end: 20110723
  3. ASMANEX TWISTHALER [Concomitant]
     Indication: ASTHMA
     Route: 045
  4. NUCYNTA [Suspect]
     Indication: NECK PAIN
     Route: 048
     Dates: start: 20110723, end: 20110723
  5. SINGULAIR [Concomitant]
     Indication: ASTHMA
     Route: 048
  6. NASONEX [Concomitant]
     Indication: ASTHMA
     Route: 045
  7. NUCYNTA [Suspect]
     Indication: MIGRAINE
     Route: 048
     Dates: start: 20110723, end: 20110723

REACTIONS (6)
  - CHEST PAIN [None]
  - ANXIETY [None]
  - THROAT TIGHTNESS [None]
  - DYSPNOEA [None]
  - HYPOAESTHESIA [None]
  - DYSSTASIA [None]
